FAERS Safety Report 12383328 (Version 1)
Quarter: 2016Q2

REPORT INFORMATION
  Report Type: Spontaneous
  Country: IE (occurrence: IE)
  Receive Date: 20160518
  Receipt Date: 20160518
  Transmission Date: 20160815
  Serious: Yes (Hospitalization)
  Sender: FDA-Public Use
  Company Number: IE-BAXALTA-2016BLT003382

PATIENT
  Sex: Male

DRUGS (4)
  1. SUBCUVIA [Suspect]
     Active Substance: HUMAN IMMUNOGLOBULIN G
     Dosage: UNK, 10 ML VIAL
     Route: 065
     Dates: start: 201604
  2. SUBCUVIA [Suspect]
     Active Substance: HUMAN IMMUNOGLOBULIN G
     Indication: PRODUCT USED FOR UNKNOWN INDICATION
     Dosage: UNK, 5 ML VIAL
     Route: 065
     Dates: start: 201604
  3. SUBCUVIA [Suspect]
     Active Substance: HUMAN IMMUNOGLOBULIN G
     Dosage: UNK, 5 ML VIAL
     Route: 065
     Dates: start: 20160509
  4. SUBCUVIA [Suspect]
     Active Substance: HUMAN IMMUNOGLOBULIN G
     Dosage: UNK, 10 ML VIAL
     Route: 065
     Dates: start: 20160509

REACTIONS (4)
  - Gait disturbance [Unknown]
  - Infusion site swelling [Unknown]
  - Infusion site inflammation [Unknown]
  - Influenza like illness [Unknown]
